FAERS Safety Report 5155377-9 (Version None)
Quarter: 2006Q4

REPORT INFORMATION
  Report Type: 
  Country: None (occurrence: None)
  Receive Date: 20061121
  Receipt Date: 20051205
  Transmission Date: 20070319
  Serious: Yes (Hospitalization)
  Sender: FDA-Public Use
  Company Number: HR-ELI_LILLY_AND_COMPANY-HR200606004296

PATIENT
  Age: 72 Year
  Sex: Female

DRUGS (3)
  1. FORTEO [Suspect]
     Dosage: 20 UG/DAY, UNK
     Route: 058
     Dates: start: 20050521, end: 20050801
  2. PEPTORAN [Concomitant]
     Indication: GASTRITIS
     Dosage: 150 MG, UNK
     Route: 048
  3. TEOLIN [Concomitant]
     Indication: BRONCHITIS CHRONIC
     Dosage: 400 MG, UNK
     Route: 048

REACTIONS (4)
  - BACK PAIN [None]
  - DYSSTASIA [None]
  - GAIT DISTURBANCE [None]
  - TREMOR [None]
